FAERS Safety Report 5235648-8 (Version None)
Quarter: 2007Q1

REPORT INFORMATION
  Report Type: 
  Country: None (occurrence: None)
  Receive Date: 20070212
  Receipt Date: 20070208
  Transmission Date: 20070707
  Serious: Yes (Other)
  Sender: FDA-Public Use
  Company Number: CA-GLAXOSMITHKLINE-A0639073A

PATIENT
  Age: 60 Year
  Sex: Female

DRUGS (3)
  1. AVANDIA [Suspect]
     Dosage: 4MG PER DAY
  2. INSULIN [Concomitant]
  3. LIPITOR [Concomitant]

REACTIONS (1)
  - PULMONARY EMBOLISM [None]
